FAERS Safety Report 5293805-9 (Version None)
Quarter: 2007Q2

REPORT INFORMATION
  Report Type: 
  Country: None (occurrence: None)
  Receive Date: 20070411
  Receipt Date: 20070330
  Transmission Date: 20071010
  Serious: Yes (Hospitalization)
  Sender: FDA-Public Use
  Company Number: IT-PFIZER INC-2007026907

PATIENT
  Sex: Male

DRUGS (5)
  1. TORVAST [Suspect]
     Indication: MYOCARDIAL ISCHAEMIA
     Route: 048
     Dates: start: 20050101, end: 20070223
  2. ASPIRIN [Concomitant]
     Route: 048
  3. TAREG [Concomitant]
     Route: 048
  4. MONOKET [Concomitant]
     Route: 048
  5. LASIX [Concomitant]

REACTIONS (7)
  - ALANINE AMINOTRANSFERASE INCREASED [None]
  - ASTHENIA [None]
  - BLOOD CREATINE PHOSPHOKINASE INCREASED [None]
  - BLOOD GLUCOSE INCREASED [None]
  - BLOOD LACTATE DEHYDROGENASE INCREASED [None]
  - LYMPHOEDEMA [None]
  - MYALGIA [None]
